FAERS Safety Report 7880522-1 (Version None)
Quarter: 2011Q4

REPORT INFORMATION
  Report Type: 
  Country: None (occurrence: None)
  Receive Date: 20111101
  Receipt Date: 20111028
  Transmission Date: 20120403
  Serious: Yes (Life-Threatening, Hospitalization)
  Sender: FDA-Public Use
  Company Number: PHHY2011DE88648

PATIENT
  Age: 54 Year
  Sex: Female

DRUGS (4)
  1. PANTOPRAZOLE [Concomitant]
     Indication: PROPHYLAXIS
     Dosage: 20 MG
     Route: 048
     Dates: start: 20110905, end: 20110914
  2. VOLTAREN [Suspect]
     Indication: BACK PAIN
     Dosage: 75 MG, QD
     Route: 048
     Dates: start: 20110905, end: 20110914
  3. VOLTAREN [Suspect]
     Indication: SCIATICA
     Dosage: 75 MG, TWICE DAILY FOR ONE DAY
     Route: 048
  4. ESTRADIOL [Concomitant]
     Indication: HORMONE REPLACEMENT THERAPY
     Dosage: 37.5 UG
     Route: 062

REACTIONS (17)
  - HEPATIC ENZYME INCREASED [None]
  - ASTHENIA [None]
  - GENERAL PHYSICAL HEALTH DETERIORATION [None]
  - MONOCYTE COUNT INCREASED [None]
  - HIGH DENSITY LIPOPROTEIN INCREASED [None]
  - BLOOD ALKALINE PHOSPHATASE INCREASED [None]
  - HYPOPHAGIA [None]
  - HEPATITIS [None]
  - NAUSEA [None]
  - GLOMERULAR FILTRATION RATE DECREASED [None]
  - BLOOD LACTATE DEHYDROGENASE INCREASED [None]
  - C-REACTIVE PROTEIN INCREASED [None]
  - INCORRECT DOSE ADMINISTERED [None]
  - WEIGHT DECREASED [None]
  - BLOOD CHOLESTEROL INCREASED [None]
  - VOMITING [None]
  - LOW DENSITY LIPOPROTEIN INCREASED [None]
